FAERS Safety Report 9301249 (Version 1)
Quarter: 2013Q2

REPORT INFORMATION
  Report Type: Report from Study
  Country: JP (occurrence: JP)
  Receive Date: 20130521
  Receipt Date: 20130521
  Transmission Date: 20140414
  Serious: Yes (Hospitalization, Other)
  Sender: FDA-Public Use
  Company Number: JP-VERTEX PHARMACEUTICALS INC-AE-2012-012036

PATIENT
  Age: 74 Year
  Sex: Female

DRUGS (9)
  1. VX-950 (TELAPREVIR) [Suspect]
     Indication: CHRONIC HEPATITIS C
     Dosage: 1500 MG, QD
     Route: 048
     Dates: start: 20120730, end: 20120731
  2. PEGINTRON [Concomitant]
     Dosage: 1.5 ?G/KG, QW
     Route: 058
     Dates: start: 20120730, end: 20120731
  3. REBETOL [Concomitant]
     Route: 048
     Dates: start: 20120730, end: 20120731
  4. CONIEL [Concomitant]
     Dosage: 4 MG, QD
     Route: 048
     Dates: start: 20100914
  5. PARIET [Concomitant]
     Dosage: 10 MG, QD
     Route: 048
     Dates: start: 20100914
  6. BENET [Concomitant]
     Dosage: 17.5 MG, QD
     Route: 048
     Dates: start: 20100914
  7. INFUSION [Concomitant]
  8. INOVAN [Concomitant]
     Route: 051
  9. NORADRENALINE [Concomitant]
     Route: 051

REACTIONS (1)
  - Blood pressure decreased [Recovered/Resolved]
